FAERS Safety Report 16482748 (Version 1)
Quarter: 2019Q2

REPORT INFORMATION
  Report Type: Spontaneous
  Country: US (occurrence: US)
  Receive Date: 20190627
  Receipt Date: 20190627
  Transmission Date: 20190711
  Serious: Yes (Other)
  Sender: FDA-Public Use
  Company Number: US-TEVA-2019-US-1067915

PATIENT
  Age: 46 Year
  Sex: Male

DRUGS (3)
  1. VENLAFAXINE XL [Suspect]
     Active Substance: VENLAFAXINE HYDROCHLORIDE
     Indication: NARCOLEPSY
     Dosage: THE DOSE WAS DECREASED ACCIDENTALLY
     Route: 065
  2. VENLAFAXINE XL [Suspect]
     Active Substance: VENLAFAXINE HYDROCHLORIDE
     Indication: NARCOLEPSY
     Route: 065
  3. MODAFINIL. [Concomitant]
     Active Substance: MODAFINIL
     Indication: NARCOLEPSY
     Dosage: 200MG TABLET IN THE MORNING AND 100MG TABLET IN THE AFTERNOON
     Route: 065

REACTIONS (2)
  - Cataplexy [Recovering/Resolving]
  - Wrong dose [Unknown]
